FAERS Safety Report 25144758 (Version 1)
Quarter: 2025Q2

REPORT INFORMATION
  Report Type: Other
  Country: IT (occurrence: IT)
  Receive Date: 20250401
  Receipt Date: 20250401
  Transmission Date: 20250716
  Serious: Yes (Death, Life-Threatening, Other)
  Sender: EMD SERONO INC
  Company Number: IT-Merck Healthcare KGaA-2025016101

PATIENT
  Age: 84 Year
  Sex: Male

DRUGS (1)
  1. AVELUMAB [Suspect]
     Active Substance: AVELUMAB
     Indication: Transitional cell carcinoma metastatic

REACTIONS (10)
  - Respiratory failure [Unknown]
  - Muscle injury [Unknown]
  - Quadriparesis [Unknown]
  - Atrioventricular block [Unknown]
  - Myocardial necrosis marker increased [Unknown]
  - Dysphagia [Unknown]
  - Diplopia [Unknown]
  - Dysphonia [Unknown]
  - Antiacetylcholine receptor antibody positive [Unknown]
  - Death [Fatal]
